FAERS Safety Report 7097320-1 (Version None)
Quarter: 2010Q4

REPORT INFORMATION
  Report Type: 
  Country: None (occurrence: None)
  Receive Date: 20101111
  Receipt Date: 20100325
  Transmission Date: 20110411
  Serious: No
  Sender: FDA-Public Use
  Company Number: US-KINGPHARMUSA00001-K201000357

PATIENT
  Sex: Male

DRUGS (2)
  1. LEVOXYL [Suspect]
     Dosage: 137 MCG, UNK
     Dates: start: 19950101
  2. LEVOXYL [Suspect]
     Dosage: 125 MCG, UNK

REACTIONS (6)
  - DRUG INEFFECTIVE [None]
  - FATIGUE [None]
  - FEELING ABNORMAL [None]
  - PAIN [None]
  - TINNITUS [None]
  - WEIGHT INCREASED [None]
